FAERS Safety Report 21743332 (Version 1)
Quarter: 2022Q4

REPORT INFORMATION
  Report Type: Spontaneous
  Country: DE (occurrence: DE)
  Receive Date: 20221217
  Receipt Date: 20221217
  Transmission Date: 20230113
  Serious: Yes (Hospitalization, Other)
  Sender: FDA-Public Use
  Company Number: DE-TEVA-2022-DE-2834692

PATIENT
  Age: 73 Year
  Sex: Male

DRUGS (11)
  1. ESOMEPRAZOLE [Suspect]
     Active Substance: ESOMEPRAZOLE
     Indication: Gastric dilatation
     Dosage: 80 MILLIGRAM DAILY; HE TOOK 40 MG DAILY IN THE MORNING AND 40 MG IN THE EVENING
     Route: 065
     Dates: start: 2015
  2. ESOMEPRAZOLE [Suspect]
     Active Substance: ESOMEPRAZOLE
     Indication: Gastrooesophageal reflux disease
  3. MIRABEGRON [Concomitant]
     Active Substance: MIRABEGRON
     Indication: Product used for unknown indication
     Dosage: 0-0-1
     Route: 065
  4. TAMSULOSIN [Concomitant]
     Active Substance: TAMSULOSIN
     Indication: Product used for unknown indication
     Dosage: 1-0-0
     Route: 065
  5. HERBALS\SAW PALMETTO [Concomitant]
     Active Substance: HERBALS\SAW PALMETTO
     Indication: Product used for unknown indication
     Route: 065
  6. NETTLE [Concomitant]
     Active Substance: URTICA DIOICA POLLEN
     Indication: Product used for unknown indication
     Route: 065
  7. MEBEVERINE [Concomitant]
     Active Substance: MEBEVERINE
     Indication: Product used for unknown indication
     Route: 065
  8. HERBALS [Concomitant]
     Active Substance: HERBALS
     Indication: Product used for unknown indication
     Route: 065
  9. GAVISCON [Concomitant]
     Active Substance: ALUMINUM HYDROXIDE\MAGNESIUM CARBONATE
     Indication: Product used for unknown indication
     Dosage: ONE SACHET IN THE EVENING
     Route: 065
  10. ALUMINUM HYDROXIDE\MAGNESIUM HYDROXIDE [Concomitant]
     Active Substance: ALUMINUM HYDROXIDE\MAGNESIUM HYDROXIDE
     Indication: Product used for unknown indication
     Dosage: AS REQUIRED
     Route: 065
  11. Propiocult intestine [Concomitant]
     Indication: Product used for unknown indication
     Route: 065

REACTIONS (20)
  - Illness [Unknown]
  - Vomiting [Unknown]
  - Dyspepsia [Unknown]
  - Intestinal polyp [Unknown]
  - Gastric polyps [Unknown]
  - Procedural complication [Unknown]
  - Procedural haemorrhage [Unknown]
  - Dysphagia [Unknown]
  - Oropharyngeal pain [Unknown]
  - Dizziness [Unknown]
  - Heart rate increased [Unknown]
  - Joint swelling [Unknown]
  - Oral candidiasis [Unknown]
  - Gastrointestinal bacterial infection [Unknown]
  - Abdominal pain upper [Unknown]
  - Middle insomnia [Unknown]
  - Achlorhydria [Unknown]
  - Weight decreased [Unknown]
  - Gastrooesophageal reflux disease [Unknown]
  - Product dose omission issue [Unknown]
